FAERS Safety Report 4772932-6 (Version None)
Quarter: 2005Q3

REPORT INFORMATION
  Report Type: 
  Country: None (occurrence: None)
  Receive Date: 20050916
  Receipt Date: 20050906
  Transmission Date: 20060218
  Serious: Yes (Hospitalization, Other)
  Sender: FDA-Public Use
  Company Number: HQWYE215514JUL05

PATIENT
  Age: 68 Year
  Sex: Male

DRUGS (11)
  1. ROFERON-A [Suspect]
     Indication: RENAL CELL CARCINOMA STAGE UNSPECIFIED
     Dosage: 3 MU, 3 TIMES A WEEK SC
     Route: 058
     Dates: start: 20050304, end: 20050618
  2. ROFERON-A [Suspect]
     Indication: RENAL CELL CARCINOMA STAGE UNSPECIFIED
     Dosage: 3 MU, 3 TIMES A WEEK SC
     Route: 058
     Dates: start: 20050711
  3. MADOPAR (BENSERAZIDE HYDROCHLORIDE/LEVODOPA) [Concomitant]
  4. COMTESS (ENTACAPONE) [Concomitant]
  5. MOVICOL (MACROGOL/POTASSIUM CHLORIDE/SODIUM BICARBONATE/SODIUM CHLORID [Concomitant]
  6. MARCUMAR [Concomitant]
  7. DURAGESIC-100 [Concomitant]
  8. GABAPENTIN [Concomitant]
  9. ALLOPURINOL [Concomitant]
  10. PANTOPRAZOLE SODIUM [Concomitant]
  11. ACETAMINOPHEN [Concomitant]

REACTIONS (7)
  - ABDOMINAL PAIN [None]
  - CONDITION AGGRAVATED [None]
  - MENTAL IMPAIRMENT [None]
  - MOBILITY DECREASED [None]
  - NEUROPATHY [None]
  - PAIN [None]
  - PARKINSON'S DISEASE [None]
